FAERS Safety Report 9716382 (Version 1)
Quarter: 2013Q4

REPORT INFORMATION
  Report Type: Spontaneous
  Country: MX (occurrence: None)
  Receive Date: 20131125
  Receipt Date: 20131125
  Transmission Date: 20140711
  Serious: Yes (Death)
  Sender: FDA-Public Use
  Company Number: SYM-2013-13016

PATIENT
  Sex: Female

DRUGS (2)
  1. WELLBUTRIN [Suspect]
     Indication: PRODUCT USED FOR UNKNOWN INDICATION
  2. PAROXETINE HYDROCHLORIDE [Suspect]
     Indication: PRODUCT USED FOR UNKNOWN INDICATION

REACTIONS (1)
  - Death [None]
